FAERS Safety Report 19028230 (Version 1)
Quarter: 2021Q1

REPORT INFORMATION
  Report Type: Spontaneous
  Country: US (occurrence: US)
  Receive Date: 20210318
  Receipt Date: 20210318
  Transmission Date: 20210420
  Serious: Yes (Hospitalization)
  Sender: FDA-Public Use
  Company Number: US-SUNOVION-2021SUN000885

PATIENT
  Age: 81 Year
  Sex: Male

DRUGS (1)
  1. LONHALA MAGNAIR [Suspect]
     Active Substance: GLYCOPYRROLATE
     Indication: CHRONIC OBSTRUCTIVE PULMONARY DISEASE
     Dosage: UNK, BID 25MCG/1ML
     Route: 055
     Dates: start: 2019

REACTIONS (2)
  - COVID-19 [Recovering/Resolving]
  - Oxygen saturation abnormal [Not Recovered/Not Resolved]
